FAERS Safety Report 9234340 (Version 1)
Quarter: 2013Q1

REPORT INFORMATION
  Report Type: Spontaneous
  Country: US (occurrence: None)
  Receive Date: 20121031
  Receipt Date: 20121031
  Transmission Date: 20140127
  Serious: No
  Sender: FDA-Public Use
  Company Number: PHEH2012US012691

PATIENT
  Age: 52 Year
  Sex: Female

DRUGS (4)
  1. GILENYA [Suspect]
     Indication: MULTIPLE SCLEROSIS
     Route: 048
     Dates: start: 20120625
  2. ESTRADIOL (ESTRADIOL) (GEL) [Concomitant]
  3. BACLOFEN (BACLOFEN) [Concomitant]
  4. NAPROXEN (NAPROXEN) [Concomitant]

REACTIONS (5)
  - Blood pressure decreased [None]
  - Hyperhidrosis [None]
  - Heart rate decreased [None]
  - Headache [None]
  - Dizziness [None]
